FAERS Safety Report 9778281 (Version 1)
Quarter: 2013Q4

REPORT INFORMATION
  Report Type: Spontaneous
  Country: US (occurrence: US)
  Receive Date: 20131223
  Receipt Date: 20131223
  Transmission Date: 20140711
  Serious: Yes (Hospitalization)
  Sender: FDA-Public Use
  Company Number: US-BAYER-2013-155082

PATIENT
  Age: 23 Year
  Sex: Female

DRUGS (6)
  1. YAZ [Suspect]
     Indication: MENSTRUAL CYCLE MANAGEMENT
     Dosage: UNK
  2. YAZ [Suspect]
     Indication: PREMENSTRUAL SYNDROME
  3. CONCERTA [Concomitant]
     Indication: ATTENTION DEFICIT/HYPERACTIVITY DISORDER
     Dosage: 54 MG, UNK
     Route: 048
  4. ADVIL [Concomitant]
     Indication: BACK PAIN
     Dosage: 4 EVERY 4 HOURS
  5. NORCO [Concomitant]
     Dosage: UNK
  6. LOVENOX [Concomitant]
     Indication: PULMONARY EMBOLISM
     Dosage: UNK

REACTIONS (1)
  - Pulmonary embolism [Recovered/Resolved]
